FAERS Safety Report 14406417 (Version 1)
Quarter: 2018Q1

REPORT INFORMATION
  Report Type: Report from Study
  Country: GR (occurrence: GR)
  Receive Date: 20180118
  Receipt Date: 20180118
  Transmission Date: 20180509
  Serious: Yes (Other)
  Sender: FDA-Public Use
  Company Number: GR-JNJFOC-20180117196

PATIENT
  Age: 40 Year
  Sex: Female
  Weight: 80 kg

DRUGS (5)
  1. ZOLOTRIN [Concomitant]
     Active Substance: SERTRALINE HYDROCHLORIDE
     Route: 065
  2. METHOTREXATE. [Concomitant]
     Active Substance: METHOTREXATE
     Indication: ANKYLOSING SPONDYLITIS
     Route: 065
  3. STELARA [Suspect]
     Active Substance: USTEKINUMAB
     Indication: CROHN^S DISEASE
     Route: 042
     Dates: start: 20171103
  4. SECTRAL [Concomitant]
     Active Substance: ACEBUTOLOL HYDROCHLORIDE
     Route: 065
  5. PREZOLON [Concomitant]
     Active Substance: PREDNISOLONE
     Indication: ANKYLOSING SPONDYLITIS
     Route: 065

REACTIONS (1)
  - Pneumonia [Recovered/Resolved]

NARRATIVE: CASE EVENT DATE: 20171108
